FAERS Safety Report 8799377 (Version 1)
Quarter: 2012Q4

REPORT INFORMATION
  Report Type: Spontaneous
  Country: US (occurrence: None)
  Receive Date: 20120918
  Receipt Date: 20120918
  Transmission Date: 20130627
  Serious: Yes (Life-Threatening, Hospitalization, Disabling)
  Sender: FDA-Public Use
  Company Number: None

PATIENT
  Age: 65 Year
  Sex: Female
  Weight: 86.8 kg

DRUGS (15)
  1. TNKASE [Suspect]
     Indication: ARTERIAL OCCLUSION
     Dosage: Tenecteplase 0.3 mg/hr continuous Intra-arterial
     Route: 013
     Dates: start: 20120821, end: 20120822
  2. CILOSTAZOL [Concomitant]
  3. ATENOLOL [Concomitant]
  4. LISINOPRIL [Concomitant]
  5. HCTZ [Concomitant]
  6. ISOSORBIDE MONONITRATE [Concomitant]
  7. GLIPIZIDE/METFORMIN [Concomitant]
  8. SIMVASTATIN [Concomitant]
  9. HEPARIN [Concomitant]
  10. ASA [Concomitant]
  11. OMEPRAZOLE [Concomitant]
  12. TIZANIDINE [Concomitant]
  13. HYDROMORPHONE [Concomitant]
  14. METOCLOPRAMIDE [Concomitant]
  15. ONDANSETRON [Concomitant]

REACTIONS (9)
  - Subarachnoid haemorrhage [None]
  - Cerebellar haematoma [None]
  - Unresponsive to stimuli [None]
  - Coma [None]
  - Nausea [None]
  - Vomiting [None]
  - Chest discomfort [None]
  - Back pain [None]
  - Hypertension [None]
